FAERS Safety Report 9130359 (Version 2)
Quarter: 2013Q1

REPORT INFORMATION
  Report Type: Report from Study
  Country: None (occurrence: CA)
  Receive Date: 20130228
  Receipt Date: 20130308
  Transmission Date: 20140127
  Serious: Yes (Death, Hospitalization, Other)
  Sender: FDA-Public Use
  Company Number: CA-ABBOTT-13P-028-1055288-00

PATIENT
  Age: 80 Year
  Sex: Male
  Weight: 63.56 kg

DRUGS (23)
  1. LUPRON DEPOT [Suspect]
     Indication: PRODUCT USED FOR UNKNOWN INDICATION
     Route: 030
     Dates: start: 20070126, end: 20121119
  2. CIPRO [Concomitant]
     Indication: PRODUCT USED FOR UNKNOWN INDICATION
     Route: 042
     Dates: start: 20130104, end: 20130112
  3. TYLENOL [Concomitant]
     Indication: PRODUCT USED FOR UNKNOWN INDICATION
     Dates: start: 20130104, end: 20130113
  4. HALDOL [Concomitant]
     Indication: PRODUCT USED FOR UNKNOWN INDICATION
     Dosage: EVERY 6 HOURS AS NEEDED
     Route: 058
     Dates: start: 20130109, end: 20130112
  5. SCOPOLAMINE [Concomitant]
     Indication: PRODUCT USED FOR UNKNOWN INDICATION
     Dosage: EVERY 4 HOURS AS NEEDED
     Route: 058
     Dates: start: 20130109, end: 20130112
  6. SCOPOLAMINE [Concomitant]
     Dosage: EVERY 2 HOURS AS NEEDED
     Route: 058
     Dates: start: 20130112, end: 20130113
  7. ACETAMINOPHEN [Concomitant]
     Indication: PRODUCT USED FOR UNKNOWN INDICATION
     Route: 054
     Dates: start: 20130109, end: 20130113
  8. BISACODYL [Concomitant]
     Indication: PRODUCT USED FOR UNKNOWN INDICATION
     Dates: start: 20130109, end: 20130113
  9. LORAZEPAM [Concomitant]
     Indication: PRODUCT USED FOR UNKNOWN INDICATION
     Dosage: 0.5MG - 1MG EVERY 4 HOURS AS NEEDED
     Route: 060
     Dates: start: 20130109, end: 20130113
  10. LORAZEPAM [Concomitant]
     Dosage: 0.5 MG - 1 MG EVERY 4 HOURS AS NEEDED
     Route: 058
     Dates: start: 20130109, end: 20130113
  11. MIDAZOLAM HYDROCHLORIDE [Concomitant]
     Indication: PRODUCT USED FOR UNKNOWN INDICATION
     Dosage: 1MG - 2MG EVERY 2 HOURS AS NEEDED
     Route: 058
     Dates: start: 20130109, end: 20130112
  12. SALIVA SUBSTITUTE [Concomitant]
     Indication: PRODUCT USED FOR UNKNOWN INDICATION
     Route: 048
     Dates: start: 20130109, end: 20130113
  13. HYDROMORPHONE HYDROCHLORIDE [Concomitant]
     Indication: PRODUCT USED FOR UNKNOWN INDICATION
     Dosage: 1MG - 2MG
     Route: 058
     Dates: start: 20130112, end: 20130113
  14. HYDROMORPHONE HYDROCHLORIDE [Concomitant]
     Dosage: 1MG - 2MG EVERY 1 HR AS NEEDED
     Route: 058
     Dates: start: 20130112, end: 20130112
  15. HYDROMORPHONE HYDROCHLORIDE [Concomitant]
     Dosage: 1MG EVERY 1 HOUR AS  NEEDED
     Route: 058
     Dates: start: 20130112, end: 20130113
  16. HYDROMORPHONE HYDROCHLORIDE [Concomitant]
     Dosage: EVERY 3 HOURS AS NEEDED
     Route: 058
     Dates: start: 20130109, end: 20130112
  17. HYDROMORPHONE HYDROCHLORIDE [Concomitant]
     Route: 058
     Dates: start: 20130109, end: 20130112
  18. MIDAZOLAM HYDROCHLORIDE [Concomitant]
     Indication: PRODUCT USED FOR UNKNOWN INDICATION
     Dosage: 1MG - 2MG EVERY 1 HOUR AS NEEDED
     Route: 058
     Dates: start: 20130112, end: 20130113
  19. DALTEPARIN SODIUM [Concomitant]
     Indication: PRODUCT USED FOR UNKNOWN INDICATION
     Route: 058
     Dates: start: 20130110, end: 20130112
  20. DEXAMETHASONE SODIUM PHOSPHATE [Concomitant]
     Indication: PRODUCT USED FOR UNKNOWN INDICATION
     Dosage: 2MG EVERY MORNING
     Route: 058
     Dates: start: 20130110, end: 20130112
  21. UNSPECIFIED MEDICATION [Concomitant]
     Indication: PRODUCT USED FOR UNKNOWN INDICATION
     Dosage: EVERY 4 HOURS AS NEEDED
  22. NYSTATIN [Concomitant]
     Indication: PRODUCT USED FOR UNKNOWN INDICATION
     Route: 048
     Dates: start: 20130109, end: 20130113
  23. BUTYLBROMIDE [Concomitant]
     Indication: PRODUCT USED FOR UNKNOWN INDICATION
     Route: 058
     Dates: start: 20130109, end: 20130112

REACTIONS (9)
  - Urosepsis [Recovered/Resolved]
  - Renal failure acute [Fatal]
  - Decreased appetite [Unknown]
  - Asthenia [Unknown]
  - Nausea [Unknown]
  - Vomiting [Unknown]
  - Prostate cancer metastatic [Unknown]
  - Sepsis [Unknown]
  - Coma [Unknown]
